FAERS Safety Report 25229600 (Version 11)
Quarter: 2025Q4

REPORT INFORMATION
  Report Type: Spontaneous
  Country: EU (occurrence: EU)
  Receive Date: 20250423
  Receipt Date: 20251014
  Transmission Date: 20260118
  Serious: Yes (Hospitalization, Other)
  Sender: SANDOZ
  Company Number: EU-SA-2025SA094221

PATIENT
  Age: 84 Year
  Sex: Female

DRUGS (49)
  1. FOLIC ACID [Suspect]
     Active Substance: FOLIC ACID
     Dosage: 1 ? WEEKLY
     Route: 048
  2. FOLIC ACID [Suspect]
     Active Substance: FOLIC ACID
     Indication: Product used for unknown indication
     Dosage: 15 MG, WEEKLY
     Route: 048
  3. GLUCOSAMINE [Suspect]
     Active Substance: GLUCOSAMINE
     Indication: Product used for unknown indication
     Dosage: UNK
     Route: 065
  4. IBUPROFEN [Suspect]
     Active Substance: IBUPROFEN
     Indication: Analgesic therapy
     Dosage: 400 MG MANY TIMES A DAY
     Route: 048
  5. IBUPROFEN [Suspect]
     Active Substance: IBUPROFEN
     Indication: Pain
     Dosage: A DOSE DIFFICULT TO DETERMINE (MANY TIMES  A DAY)
     Route: 048
  6. IBUPROFEN [Suspect]
     Active Substance: IBUPROFEN
     Indication: Pain management
     Dosage: UNK
     Route: 065
  7. KETOPROFEN [Suspect]
     Active Substance: KETOPROFEN
     Indication: Pain management
     Dosage: UNK APPLIED TO THE HAND AND KNEE JOINT AREA 4  ?/DAY
     Route: 061
  8. KETOPROFEN [Suspect]
     Active Substance: KETOPROFEN
     Indication: Analgesic therapy
  9. KETOPROFEN [Suspect]
     Active Substance: KETOPROFEN
     Indication: Arthralgia
  10. KETOPROFEN [Suspect]
     Active Substance: KETOPROFEN
     Indication: Pain
  11. METHOTREXATE [Suspect]
     Active Substance: METHOTREXATE
     Indication: Rheumatoid arthritis
     Dosage: 1 ? WEEKLY
     Route: 058
  12. METHOTREXATE [Suspect]
     Active Substance: METHOTREXATE
     Indication: Pain
     Dosage: 15 MG, QW (WEEKLY)
     Route: 058
  13. METHOTREXATE [Suspect]
     Active Substance: METHOTREXATE
     Indication: Product used for unknown indication
     Dosage: 15.000MG WEEK
     Route: 065
  14. METHYLPREDNISOLONE [Suspect]
     Active Substance: METHYLPREDNISOLONE
     Indication: Pain
     Dosage: 1 ? 1TABL. IN THE MORNING ORALLY (LONG-TERM  THERAPY).
     Route: 048
  15. METHYLPREDNISOLONE [Suspect]
     Active Substance: METHYLPREDNISOLONE
     Dosage: 4 MG, ONCE DAILY IN THE MORNIN
     Route: 065
  16. METHYLPREDNISOLONE [Suspect]
     Active Substance: METHYLPREDNISOLONE
     Indication: Rheumatoid arthritis
     Dosage: 4 MG ONCE A WEEK 1 TABLET IN THE MORNING
     Route: 048
  17. METHYLPREDNISOLONE [Suspect]
     Active Substance: METHYLPREDNISOLONE
     Dosage: 4 MG 1 X 1 TABLET ORALLY, IN THE MORNING  (LONG-TERM THERAPY)
     Route: 048
  18. MIRTAZAPINE [Suspect]
     Active Substance: MIRTAZAPINE
     Indication: Anxiety
     Dosage: 15 MG (15 MG IN THE EVENING)
     Route: 048
  19. MIRTAZAPINE [Suspect]
     Active Substance: MIRTAZAPINE
     Indication: Depression
  20. NIMESULIDE [Suspect]
     Active Substance: NIMESULIDE
     Indication: Pain management
     Dosage: 100 MG
     Route: 048
  21. NIMESULIDE [Suspect]
     Active Substance: NIMESULIDE
     Indication: Analgesic therapy
     Dosage: UNK
     Route: 065
  22. NIMESULIDE [Suspect]
     Active Substance: NIMESULIDE
     Indication: Pain
  23. PREGABALIN [Suspect]
     Active Substance: PREGABALIN
     Indication: Anxiety
     Dosage: 25 MG , EVERY OTHER DAY (2 ? 25  MG IN THE MORNING AND AT NIGHT)
     Route: 048
  24. PREGABALIN [Suspect]
     Active Substance: PREGABALIN
     Indication: Analgesic therapy
  25. PREGABALIN [Suspect]
     Active Substance: PREGABALIN
     Indication: Depression
  26. PREGABALIN [Suspect]
     Active Substance: PREGABALIN
     Indication: Depression
  27. PREGABALIN [Suspect]
     Active Substance: PREGABALIN
     Indication: Major depression
  28. PREGABALIN [Suspect]
     Active Substance: PREGABALIN
     Indication: Major depression
  29. ACETAMINOPHEN [Suspect]
     Active Substance: ACETAMINOPHEN
     Indication: Analgesic therapy
     Dosage: 75 MG + 650 MG 4 X 1 TABLET
     Route: 065
  30. ACETAMINOPHEN [Suspect]
     Active Substance: ACETAMINOPHEN
     Indication: Pain management
     Dosage: UNK
     Route: 065
  31. ACETAMINOPHEN [Suspect]
     Active Substance: ACETAMINOPHEN
     Indication: Pain
  32. TRAMADOL [Suspect]
     Active Substance: TRAMADOL
     Indication: Analgesic therapy
     Dosage: UNK
     Route: 065
  33. TRAMADOL [Suspect]
     Active Substance: TRAMADOL
     Indication: Pain
  34. TRAMADOL [Suspect]
     Active Substance: TRAMADOL
     Indication: Pain management
  35. ACETAMINOPHEN\TRAMADOL [Suspect]
     Active Substance: ACETAMINOPHEN\TRAMADOL
     Indication: Analgesic therapy
     Dosage: 4 ? 1 TABL
     Route: 048
  36. ACETAMINOPHEN\TRAMADOL [Suspect]
     Active Substance: ACETAMINOPHEN\TRAMADOL
     Indication: Pain
     Dosage: 75 MG + 650 MG 4 ? 1 T (1 DF, 0.25 DAYS)
     Route: 048
  37. ACETAMINOPHEN\TRAMADOL [Suspect]
     Active Substance: ACETAMINOPHEN\TRAMADOL
     Indication: Pain management
     Dosage: 4 DOSAGE FORM, DAILY (2600 MG/300 MG  (650 MG/75 MG, 4 IN 1D))
     Route: 048
  38. CHONDROITIN [Concomitant]
     Active Substance: CHONDROITIN
     Indication: Product used for unknown indication
     Dosage: UNK
     Route: 065
  39. FOLIC ACID [Concomitant]
     Active Substance: FOLIC ACID
     Indication: Supplementation therapy
     Dosage: 15 MG, QW
     Route: 048
  40. GLUCOSAMINE [Concomitant]
     Active Substance: GLUCOSAMINE
     Indication: Product used for unknown indication
     Dosage: UNK
     Route: 065
  41. HERBAL NOS [Concomitant]
     Active Substance: HERBALS
     Indication: Product used for unknown indication
     Route: 065
  42. METHOTREXATE [Concomitant]
     Active Substance: METHOTREXATE
     Indication: Rheumatoid arthritis
     Dosage: 15 MG, QW
     Route: 058
  43. METHYLPREDNISOLONE [Concomitant]
     Active Substance: METHYLPREDNISOLONE
     Indication: Pain
     Dosage: 4 MG, QD
     Route: 048
  44. METHYLPREDNISOLONE [Concomitant]
     Active Substance: METHYLPREDNISOLONE
     Indication: Rheumatoid arthritis
     Dosage: 4 MG 1 X 1 TABLET. IN THE MORNING ORALLY  (LONG-TERM THERAPY)
     Route: 048
  45. METHYLPREDNISOLONE [Concomitant]
     Active Substance: METHYLPREDNISOLONE
     Indication: Pain
  46. TAPENTADOL [Concomitant]
     Active Substance: TAPENTADOL
     Indication: Arthralgia
     Dosage: 100 MG, BID TWO TIMES A DAY (INITIALLY 50 MG EVERY 12 H ORALLY,)
     Route: 048
  47. TAPENTADOL [Concomitant]
     Active Substance: TAPENTADOL
     Dosage: 200 MG, BID TWO TIMES A DAY (AND THEN AFTER 3 DAYS 100 MG EVERY 12 H)
     Route: 048
  48. VITAMIN B12 [Concomitant]
     Active Substance: CYANOCOBALAMIN
     Indication: Vitamin B12 deficiency
     Route: 030
  49. VITAMIN D3 [Concomitant]
     Active Substance: CHOLECALCIFEROL
     Indication: Vitamin D deficiency
     Dosage: THERAPEUTIC DOSES
     Route: 048

REACTIONS (13)
  - Abdominal pain upper [Recovering/Resolving]
  - Dyspepsia [Recovering/Resolving]
  - Constipation [Recovering/Resolving]
  - Nausea [Recovered/Resolved]
  - Dizziness [Recovering/Resolving]
  - General physical health deterioration [Recovering/Resolving]
  - Urinary tract infection [Recovering/Resolving]
  - Pain [Recovering/Resolving]
  - Drug ineffective [Recovered/Resolved]
  - Therapeutic product effect incomplete [Unknown]
  - Inadequate analgesia [Unknown]
  - Vomiting [Recovered/Resolved]
  - Product use issue [Recovered/Resolved]
